FAERS Safety Report 20590168 (Version 1)
Quarter: 2022Q1

REPORT INFORMATION
  Report Type: Spontaneous
  Country: DE (occurrence: DE)
  Receive Date: 20220314
  Receipt Date: 20220314
  Transmission Date: 20220424
  Serious: Yes (Other)
  Sender: FDA-Public Use
  Company Number: DE-002147023-NVSC2019DE030605

PATIENT
  Sex: Male

DRUGS (6)
  1. VALSARTAN [Suspect]
     Active Substance: VALSARTAN
     Indication: Hypertension
     Dosage: UNK
     Route: 065
     Dates: start: 201303
  2. VALSARTAN [Suspect]
     Active Substance: VALSARTAN
     Dosage: 40 MILLIGRAM (40 MG)
     Route: 065
  3. VALSARTAN [Suspect]
     Active Substance: VALSARTAN
     Indication: Hypertension
     Dosage: 80 MILLIGRAM, QD (80 MG, QD)
     Route: 065
     Dates: start: 2010, end: 2019
  4. MIRTAZAPINE [Concomitant]
     Active Substance: MIRTAZAPINE
     Indication: Product used for unknown indication
     Dosage: UNK
     Route: 065
  5. ESOMEPRAZOLE [Concomitant]
     Active Substance: ESOMEPRAZOLE
     Indication: Product used for unknown indication
     Dosage: UNK
     Route: 065
     Dates: start: 2018
  6. MESALAMINE [Concomitant]
     Active Substance: MESALAMINE
     Indication: Product used for unknown indication
     Dosage: UNK
     Route: 065

REACTIONS (10)
  - Inflammatory bowel disease [Not Recovered/Not Resolved]
  - Shock symptom [Unknown]
  - Dry mouth [Unknown]
  - Emotional distress [Unknown]
  - Quality of life decreased [Unknown]
  - Somatic symptom disorder [Not Recovered/Not Resolved]
  - Reflux gastritis [Unknown]
  - Anger [Unknown]
  - Restlessness [Unknown]
  - Fear of disease [Unknown]

NARRATIVE: CASE EVENT DATE: 20100101
